FAERS Safety Report 8062182-2 (Version None)
Quarter: 2012Q1

REPORT INFORMATION
  Report Type: 
  Country: None (occurrence: None)
  Receive Date: 20120123
  Receipt Date: 20120116
  Transmission Date: 20120608
  Serious: Yes (Death)
  Sender: FDA-Public Use
  Company Number: US-ROXANE LABORATORIES, INC.-2012-EU-00333GD

PATIENT
  Age: 55 Year
  Sex: Female

DRUGS (12)
  1. HYDROCODONE BITARTRATE [Suspect]
     Route: 048
  2. PRAVASTATIN [Suspect]
     Route: 048
  3. CYCLOBENZAPRINE [Suspect]
     Route: 048
  4. MORPHINE [Suspect]
     Route: 048
  5. EZETIMIBE/SIMVASTATIN [Suspect]
     Route: 048
  6. LISINOPRIL [Suspect]
     Route: 048
  7. CIMETIDINE [Suspect]
     Route: 048
  8. OXYCODONE HCL [Suspect]
     Route: 048
  9. GABAPENTIN [Suspect]
     Route: 048
  10. ALPRAZOLAM [Suspect]
     Route: 048
  11. MONTELUKAST [Suspect]
     Route: 048
  12. NAPROXEN [Suspect]
     Route: 048

REACTIONS (1)
  - DEATH [None]
